FAERS Safety Report 25692394 (Version 1)
Quarter: 2025Q3

REPORT INFORMATION
  Report Type: Spontaneous
  Country: US (occurrence: US)
  Receive Date: 20250818
  Receipt Date: 20250818
  Transmission Date: 20251020
  Serious: No
  Sender: SANOFI AVENTIS
  Company Number: US-SA-2025SA239130

PATIENT
  Sex: Male

DRUGS (14)
  1. DUPIXENT [Suspect]
     Active Substance: DUPILUMAB
     Indication: Chronic obstructive pulmonary disease
     Route: 058
  2. DUPIXENT [Suspect]
     Active Substance: DUPILUMAB
     Dosage: 400 MG, QOW
     Route: 058
  3. VITAMINS [Concomitant]
     Active Substance: VITAMINS
  4. POTASSIUM CHLORATE [Concomitant]
     Active Substance: POTASSIUM CHLORATE
  5. LOSARTAN POTASSIUM [Concomitant]
     Active Substance: LOSARTAN POTASSIUM
  6. VITAMIN B12 [Concomitant]
     Active Substance: CYANOCOBALAMIN
  7. PREGABALIN [Concomitant]
     Active Substance: PREGABALIN
  8. MOUNJARO [Concomitant]
     Active Substance: TIRZEPATIDE
  9. ELIQUIS [Concomitant]
     Active Substance: APIXABAN
  10. ATORVASTATIN [Concomitant]
     Active Substance: ATORVASTATIN
  11. FUROSEMIDE [Concomitant]
     Active Substance: FUROSEMIDE
  12. VITAMIN D2 [Concomitant]
     Active Substance: ERGOCALCIFEROL
  13. BREZTRI [Concomitant]
     Active Substance: BUDESONIDE\FORMOTEROL\GLYCOPYRROLATE
  14. OMEPRAZOLE [Concomitant]
     Active Substance: OMEPRAZOLE

REACTIONS (2)
  - Dyspnoea [Not Recovered/Not Resolved]
  - Extra dose administered [Unknown]
